FAERS Safety Report 16413153 (Version 1)
Quarter: 2019Q2

REPORT INFORMATION
  Report Type: Spontaneous
  Country: GB (occurrence: GB)
  Receive Date: 20190611
  Receipt Date: 20190611
  Transmission Date: 20190711
  Serious: Yes (Hospitalization)
  Sender: FDA-Public Use
  Company Number: GB-TEVA-2019-GB-1060065

PATIENT
  Age: 51 Year

DRUGS (6)
  1. QVAR [Concomitant]
     Active Substance: BECLOMETHASONE DIPROPIONATE
     Dosage: PUFF
  2. SERTRALINE [Concomitant]
     Active Substance: SERTRALINE HYDROCHLORIDE
  3. CALCICHEW [Concomitant]
     Active Substance: CALCIUM CARBONATE
  4. PREDNISOLONE. [Concomitant]
     Active Substance: PREDNISOLONE
     Dosage: FOR 10 DAYS
     Dates: start: 20190312
  5. DOXYCYCLINE. [Suspect]
     Active Substance: DOXYCYCLINE
     Dosage: FOR A WEEK
     Dates: start: 20190312, end: 20190314
  6. OLANZAPINE. [Concomitant]
     Active Substance: OLANZAPINE
     Dosage: IN THE MORNING

REACTIONS (3)
  - Dyspnoea [Recovered/Resolved]
  - Bronchospasm [Unknown]
  - Rash [Recovered/Resolved]

NARRATIVE: CASE EVENT DATE: 20190314
